FAERS Safety Report 5381827-9 (Version None)
Quarter: 2007Q3

REPORT INFORMATION
  Report Type: 
  Country: None (occurrence: None)
  Receive Date: 20070709
  Receipt Date: 20070627
  Transmission Date: 20080115
  Serious: Yes (Hospitalization)
  Sender: FDA-Public Use
  Company Number: GB-ROCHE-505274

PATIENT
  Age: 36 Year
  Sex: Female
  Weight: 80 kg

DRUGS (6)
  1. LARIAM [Suspect]
     Indication: MALARIA PROPHYLAXIS
     Route: 048
     Dates: start: 20070623
  2. WARFARIN SODIUM [Concomitant]
  3. RAMIPRIL [Concomitant]
     Indication: HYPERTENSION
  4. HEPATYRIX [Concomitant]
     Dates: start: 20070618
  5. REVAXIS [Concomitant]
     Dates: start: 20070615
  6. MENINGOCOCCAL VACCINE [Concomitant]
     Indication: PROPHYLAXIS
     Dates: start: 20070531

REACTIONS (2)
  - ELECTROCARDIOGRAM QT PROLONGED [None]
  - TORSADE DE POINTES [None]
